FAERS Safety Report 17223589 (Version 1)
Quarter: 2019Q4

REPORT INFORMATION
  Report Type: Spontaneous
  Country: US (occurrence: US)
  Receive Date: 20191209
  Receipt Date: 20191209
  Transmission Date: 20200122
  Serious: Yes (Hospitalization)
  Sender: FDA-Public Use
  Company Number: None

PATIENT
  Age: 38 Year
  Sex: Female
  Weight: 71 kg

DRUGS (1)
  1. SULFAMETHOXAZOLE/TRIMETHOPRIM [Suspect]
     Active Substance: SULFAMETHOXAZOLE\TRIMETHOPRIM
     Indication: WOUND
     Route: 048
     Dates: start: 20191129, end: 20191203

REACTIONS (9)
  - Asthenia [None]
  - Nausea [None]
  - Bile duct stone [None]
  - Autoimmune hepatitis [None]
  - Hepatic enzyme increased [None]
  - Hepatitis viral [None]
  - Drug-induced liver injury [None]
  - Vomiting [None]
  - Abdominal pain [None]

NARRATIVE: CASE EVENT DATE: 20191203
